FAERS Safety Report 8182869-0 (Version None)
Quarter: 2012Q1

REPORT INFORMATION
  Report Type: 
  Country: None (occurrence: None)
  Receive Date: 20120305
  Receipt Date: 20120223
  Transmission Date: 20120608
  Serious: Yes (Hospitalization)
  Sender: FDA-Public Use
  Company Number: FR-BRISTOL-MYERS SQUIBB COMPANY-16420358

PATIENT
  Age: 89 Year
  Sex: Male

DRUGS (6)
  1. IRBESARTAN [Suspect]
     Indication: HYPERTENSION
     Dosage: 1 PER DAY
     Route: 048
     Dates: start: 20111024, end: 20111101
  2. FUROSEMIDE [Concomitant]
     Dosage: IN THE MORNING
  3. LORAZEPAM [Concomitant]
     Dosage: 1DF:3 TABS PER DAY
  4. AMLODIPINE BESYLATE [Suspect]
     Indication: HYPERTENSION
     Dosage: 2 PER DAY
     Route: 048
     Dates: start: 20111024, end: 20111101
  5. FLUVASTATIN [Concomitant]
     Dosage: 1DF:3 TABS PER DAY
  6. ALLOPURINOL [Concomitant]
     Dosage: IN THE MORNING

REACTIONS (2)
  - FALL [None]
  - HYPOTENSION [None]
